FAERS Safety Report 6427305-7 (Version None)
Quarter: 2009Q4

REPORT INFORMATION
  Report Type: 
  Country: None (occurrence: None)
  Receive Date: 20091104
  Receipt Date: 20091027
  Transmission Date: 20100525
  Serious: Yes (Hospitalization)
  Sender: FDA-Public Use
  Company Number: B0601285A

PATIENT
  Age: 50 Year
  Sex: Male

DRUGS (1)
  1. HYCAMTIN [Suspect]
     Indication: LUNG CANCER METASTATIC
     Dosage: 2.3MGM2 PER DAY
     Route: 048
     Dates: start: 20091007, end: 20091012

REACTIONS (6)
  - ABDOMINAL PAIN [None]
  - BACTERIAL TEST POSITIVE [None]
  - COLITIS [None]
  - COLITIS ISCHAEMIC [None]
  - ENTEROCOLITIS INFECTIOUS [None]
  - NEUTROPENIA [None]
